FAERS Safety Report 23749613 (Version 1)
Quarter: 2024Q2

REPORT INFORMATION
  Report Type: Spontaneous
  Country: CN (occurrence: CN)
  Receive Date: 20240416
  Receipt Date: 20240416
  Transmission Date: 20240716
  Serious: Yes (Life-Threatening, Hospitalization, Other)
  Sender: FDA-Public Use
  Company Number: CN-Jiangsu Hansoh Pharmaceutical Co., Ltd-2155629

PATIENT
  Age: 65 Year
  Sex: Female

DRUGS (2)
  1. GEMCITABINE HYDROCHLORIDE [Suspect]
     Active Substance: GEMCITABINE HYDROCHLORIDE
     Indication: Invasive ductal breast carcinoma
     Route: 041
     Dates: start: 20240318, end: 20240318
  2. LOBAPLATIN [Suspect]
     Active Substance: LOBAPLATIN
     Route: 041
     Dates: start: 20240318, end: 20240325

REACTIONS (3)
  - Myelosuppression [Recovering/Resolving]
  - Gingival bleeding [Unknown]
  - Dizziness [Unknown]

NARRATIVE: CASE EVENT DATE: 20240402
